FAERS Safety Report 6715680-5 (Version None)
Quarter: 2010Q2

REPORT INFORMATION
  Report Type: 
  Country: None (occurrence: None)
  Receive Date: 20100507
  Receipt Date: 20100422
  Transmission Date: 20101027
  Serious: Yes (Hospitalization)
  Sender: FDA-Public Use
  Company Number: US-ROCHE-700942

PATIENT
  Sex: Male
  Weight: 86.2 kg

DRUGS (4)
  1. KLONOPIN [Suspect]
     Indication: BIPOLAR DISORDER
     Dosage: OTHER INDICATION: ANXIETY, DEPRESSION
     Route: 048
     Dates: start: 20050101
  2. KLONOPIN [Suspect]
     Dosage: DOSE REDUCED, TOTAL DURATION: 4-5 YEARS
     Route: 048
     Dates: end: 20090901
  3. ZYPREXA [Concomitant]
  4. EFFEXOR [Concomitant]

REACTIONS (5)
  - HALLUCINATION [None]
  - HIP FRACTURE [None]
  - NOCTURIA [None]
  - THROMBOSIS [None]
  - WEIGHT INCREASED [None]
